FAERS Safety Report 25654530 (Version 1)
Quarter: 2025Q3

REPORT INFORMATION
  Report Type: Spontaneous
  Country: US (occurrence: None)
  Receive Date: 20250806
  Receipt Date: 20250806
  Transmission Date: 20251020
  Serious: Yes (Death)
  Sender: FDA-CTU
  Company Number: None

PATIENT
  Sex: Female

DRUGS (3)
  1. EPINEPHRINE [Suspect]
     Active Substance: EPINEPHRINE
     Indication: Immunodeficiency common variable
     Route: 058
     Dates: start: 20250529
  2. PUMP FREEDOM 60 [Concomitant]
  3. EPINEPHRINE AUTO-INJ [Concomitant]

REACTIONS (1)
  - Death [None]
